FAERS Safety Report 10433177 (Version 1)
Quarter: 2014Q3

REPORT INFORMATION
  Report Type: Spontaneous
  Country: IT (occurrence: IT)
  Receive Date: 20140905
  Receipt Date: 20140905
  Transmission Date: 20150326
  Serious: Yes (Hospitalization)
  Sender: FDA-Public Use
  Company Number: IT-ASTRAZENECA-2014SE64877

PATIENT
  Age: 3889 Week
  Sex: Female

DRUGS (11)
  1. NOVONORM [Concomitant]
     Active Substance: REPAGLINIDE
     Route: 048
  2. TORVAST [Concomitant]
     Active Substance: ATORVASTATIN
  3. LYRICA [Concomitant]
     Active Substance: PREGABALIN
  4. PANTOPRAZOLE [Concomitant]
     Active Substance: PANTOPRAZOLE SODIUM
  5. EUTIROX [Concomitant]
     Active Substance: LEVOTHYROXINE SODIUM
     Route: 048
  6. SIRIO [Concomitant]
     Active Substance: CARBIDOPA\MELEVODOPA
  7. EBIXA [Concomitant]
     Active Substance: MEMANTINE HYDROCHLORIDE
  8. CARDICOR [Concomitant]
     Active Substance: BISOPROLOL
  9. ARIXTRA [Concomitant]
     Active Substance: FONDAPARINUX SODIUM
     Dosage: 2.5MG/0.5ML
     Route: 058
  10. SEROQUEL [Suspect]
     Active Substance: QUETIAPINE FUMARATE
     Indication: MAJOR DEPRESSION
     Route: 048
     Dates: start: 20140101
  11. SEROQUEL [Suspect]
     Active Substance: QUETIAPINE FUMARATE
     Indication: MAJOR DEPRESSION
     Route: 048
     Dates: start: 20140101

REACTIONS (1)
  - Sopor [Recovered/Resolved]

NARRATIVE: CASE EVENT DATE: 20140717
